FAERS Safety Report 5823770-4 (Version None)
Quarter: 2008Q3

REPORT INFORMATION
  Report Type: 
  Country: None (occurrence: None)
  Receive Date: 20080725
  Receipt Date: 20080716
  Transmission Date: 20090109
  Serious: Yes (Life-Threatening)
  Sender: FDA-Public Use
  Company Number: JP-MERCK-0807USA03642

PATIENT
  Age: 66 Year
  Sex: Male

DRUGS (6)
  1. PRIMAXIN [Suspect]
     Route: 051
     Dates: start: 20071019, end: 20071022
  2. PRIMAXIN [Suspect]
     Route: 051
     Dates: start: 20070929, end: 20071005
  3. FLUMARIN [Suspect]
     Route: 051
     Dates: start: 20070924, end: 20070928
  4. MAXIPIME [Concomitant]
     Route: 051
     Dates: start: 20071015, end: 20071019
  5. GENTAMICIN [Concomitant]
     Route: 051
     Dates: start: 20071022, end: 20071029
  6. CIPROFLOXACIN [Concomitant]
     Route: 051
     Dates: start: 20071022, end: 20071029

REACTIONS (7)
  - BACTERAEMIA [None]
  - DISSEMINATED INTRAVASCULAR COAGULATION [None]
  - JAUNDICE [None]
  - MULTI-ORGAN FAILURE [None]
  - RENAL IMPAIRMENT [None]
  - SEPSIS [None]
  - SHOCK [None]
